FAERS Safety Report 18621249 (Version 1)
Quarter: 2020Q4

REPORT INFORMATION
  Report Type: Report from Study
  Country: CA (occurrence: CA)
  Receive Date: 20201216
  Receipt Date: 20201216
  Transmission Date: 20210114
  Serious: Yes (Other)
  Sender: FDA-Public Use
  Company Number: CA-JNJFOC-20201219592

PATIENT
  Age: 37 Year
  Sex: Female
  Weight: 98 kg

DRUGS (1)
  1. REMICADE [Suspect]
     Active Substance: INFLIXIMAB
     Indication: COLITIS ULCERATIVE
     Route: 042
     Dates: start: 20150322

REACTIONS (2)
  - COVID-19 [Not Recovered/Not Resolved]
  - Immunosuppression [Unknown]

NARRATIVE: CASE EVENT DATE: 20201207
